FAERS Safety Report 7264111-8 (Version None)
Quarter: 2011Q1

REPORT INFORMATION
  Report Type: 
  Country: None (occurrence: None)
  Receive Date: 20110130
  Receipt Date: 20110124
  Transmission Date: 20110831
  Serious: Yes (Death)
  Sender: FDA-Public Use
  Company Number: DE-BRISTOL-MYERS SQUIBB COMPANY-15419294

PATIENT
  Age: 66 Year
  Sex: Male

DRUGS (3)
  1. DOCETAXEL [Suspect]
     Indication: HEAD AND NECK CANCER
     Route: 042
     Dates: start: 20100531, end: 20100909
  2. CISPLATIN [Suspect]
     Indication: HEAD AND NECK CANCER
     Route: 042
     Dates: start: 20100531, end: 20100909
  3. CETUXIMAB [Suspect]
     Indication: HEAD AND NECK CANCER
     Dosage: INITIAL DOSE 400MG/M2 250MG/M2:1 IN 1 WEEK RECENT INF:6SEP10
     Route: 042
     Dates: start: 20100531, end: 20100906

REACTIONS (1)
  - PNEUMONIA ASPIRATION [None]
